FAERS Safety Report 20633192 (Version 2)
Quarter: 2022Q2

REPORT INFORMATION
  Report Type: Spontaneous
  Country: JP (occurrence: JP)
  Receive Date: 20220324
  Receipt Date: 20220407
  Transmission Date: 20220721
  Serious: Yes (Hospitalization)
  Sender: FDA-Public Use
  Company Number: JP-TEVA-2022-JP-2018944

PATIENT
  Age: 39 Year
  Sex: Female
  Weight: 36 kg

DRUGS (17)
  1. ARIPIPRAZOLE [Suspect]
     Active Substance: ARIPIPRAZOLE
     Indication: Mania
     Dosage: 24 MILLIGRAM DAILY;
     Route: 065
  2. OLANZAPINE [Suspect]
     Active Substance: OLANZAPINE
     Indication: Bipolar I disorder
     Route: 065
  3. QUETIAPINE [Suspect]
     Active Substance: QUETIAPINE
     Indication: Bipolar I disorder
     Dosage: 200 MILLIGRAM DAILY;
     Route: 065
  4. HALOPERIDOL [Suspect]
     Active Substance: HALOPERIDOL
     Indication: Bipolar I disorder
     Route: 065
  5. LITHIUM [Suspect]
     Active Substance: LITHIUM
     Indication: Bipolar I disorder
     Dosage: 500 MILLIGRAM DAILY;
     Route: 065
  6. LITHIUM [Suspect]
     Active Substance: LITHIUM
     Dosage: 200 MILLIGRAM DAILY;
     Route: 065
  7. LITHIUM [Suspect]
     Active Substance: LITHIUM
     Dosage: 400 MILLIGRAM DAILY;
     Route: 065
  8. LITHIUM [Suspect]
     Active Substance: LITHIUM
     Dosage: 500 MILLIGRAM DAILY; DOSE INCREASED FOLLOWING PERSISTENT LOW TSH LEVELS
     Route: 065
  9. ZOTEPINE [Suspect]
     Active Substance: ZOTEPINE
     Indication: Bipolar I disorder
     Route: 065
  10. ZOTEPINE [Suspect]
     Active Substance: ZOTEPINE
     Dosage: 25 MG
     Route: 065
  11. SULPIRIDE [Concomitant]
     Active Substance: SULPIRIDE
     Indication: Bipolar I disorder
     Dosage: 150 MILLIGRAM DAILY;
     Route: 065
  12. FLUNITRAZEPAM [Concomitant]
     Active Substance: FLUNITRAZEPAM
     Indication: Bipolar I disorder
     Dosage: 2 MG
     Route: 065
  13. FLUNITRAZEPAM [Concomitant]
     Active Substance: FLUNITRAZEPAM
     Dosage: 1 MG
     Route: 065
  14. FLUNITRAZEPAM [Concomitant]
     Active Substance: FLUNITRAZEPAM
     Dosage: .5 MILLIGRAM DAILY;
     Route: 065
  15. TRIAZOLAM [Concomitant]
     Active Substance: TRIAZOLAM
     Indication: Bipolar I disorder
     Dosage: 0.25 MG
     Route: 065
  16. MOSAPRIDE CITRATE DIHYDRATE [Concomitant]
     Active Substance: MOSAPRIDE CITRATE DIHYDRATE
     Indication: Bipolar I disorder
     Dosage: 15 MG
     Route: 065
  17. MAGNESIUM OXIDE [Concomitant]
     Active Substance: MAGNESIUM OXIDE
     Indication: Bipolar I disorder
     Dosage: 1980 MILLIGRAM DAILY;
     Route: 065

REACTIONS (8)
  - Blood creatine phosphokinase increased [Unknown]
  - Neuroleptic malignant syndrome [Recovered/Resolved]
  - Tremor [Unknown]
  - Arthralgia [Unknown]
  - Salivary hypersecretion [Unknown]
  - Dysphagia [Unknown]
  - Thyroiditis [Unknown]
  - Drug ineffective [Unknown]
